FAERS Safety Report 12874415 (Version 2)
Quarter: 2017Q1

REPORT INFORMATION
  Report Type: Spontaneous
  Country: US (occurrence: US)
  Receive Date: 20161021
  Receipt Date: 20170123
  Transmission Date: 20170428
  Serious: No
  Sender: FDA-Public Use
  Company Number: US-DEPOMED, INC.-US-2016DEP009384

PATIENT

DRUGS (10)
  1. OMEPRAZOLE. [Concomitant]
     Active Substance: OMEPRAZOLE
     Indication: IMPAIRED GASTRIC EMPTYING
  2. CITALOPRAM [Concomitant]
     Active Substance: CITALOPRAM HYDROBROMIDE
     Indication: DEPRESSION
     Dosage: 20 MG, ONCE AT NIGHT
     Route: 048
     Dates: start: 2004
  3. LORATADINE. [Concomitant]
     Active Substance: LORATADINE
     Indication: DUST ALLERGY
     Dosage: 10 MG, ONCE AT NIGHT
     Route: 048
  4. FLONASE [Concomitant]
     Active Substance: FLUTICASONE PROPIONATE
     Indication: PRODUCT USED FOR UNKNOWN INDICATION
     Dosage: 2 PUFFS EACH NOSTRIL TWICE DAILY PRN
     Route: 045
     Dates: start: 2011
  5. GABAPENTIN. [Concomitant]
     Active Substance: GABAPENTIN
     Indication: INSOMNIA
     Dosage: 600 MG, QD 1200 OR 1800 MG AT NIGHT
     Route: 048
     Dates: start: 2011
  6. OMEPRAZOLE. [Concomitant]
     Active Substance: OMEPRAZOLE
     Indication: GASTRITIS
     Dosage: 20 MG, QD
     Route: 048
  7. NUCYNTA ER [Suspect]
     Active Substance: TAPENTADOL HYDROCHLORIDE
     Dosage: 100 MG, QD
     Route: 048
     Dates: start: 20160226, end: 20160313
  8. NUCYNTA ER [Suspect]
     Active Substance: TAPENTADOL HYDROCHLORIDE
     Indication: VISCERAL PAIN
     Dosage: 100 MG, QD
     Route: 048
     Dates: start: 20160218, end: 20160221
  9. NUCYNTA ER [Suspect]
     Active Substance: TAPENTADOL HYDROCHLORIDE
     Dosage: 50 MG, QD
     Route: 048
     Dates: start: 20160314, end: 20160404
  10. CITALOPRAM [Concomitant]
     Active Substance: CITALOPRAM HYDROBROMIDE
     Indication: BIPOLAR DISORDER

REACTIONS (6)
  - Pruritus [Recovered/Resolved]
  - Inappropriate schedule of drug administration [Recovered/Resolved]
  - Product quality issue [Recovered/Resolved]
  - Urine analysis abnormal [Recovered/Resolved]
  - Energy increased [Recovered/Resolved]
  - Irritability [Recovered/Resolved]

NARRATIVE: CASE EVENT DATE: 2016
